FAERS Safety Report 6716722-3 (Version None)
Quarter: 2010Q2

REPORT INFORMATION
  Report Type: 
  Country: None (occurrence: None)
  Receive Date: 20100510
  Receipt Date: 20100430
  Transmission Date: 20101027
  Serious: No
  Sender: FDA-Public Use
  Company Number: US-BIOGENIDEC-2010BI014333

PATIENT
  Age: 36 Year
  Sex: Female

DRUGS (1)
  1. AVONEX [Suspect]
     Indication: MULTIPLE SCLEROSIS
     Route: 030
     Dates: start: 20050322

REACTIONS (9)
  - BALANCE DISORDER [None]
  - CONCUSSION [None]
  - FALL [None]
  - HEAD INJURY [None]
  - JOINT INJURY [None]
  - JOINT SPRAIN [None]
  - MULTIPLE SCLEROSIS [None]
  - MUSCLE ATROPHY [None]
  - SKIN LACERATION [None]
